FAERS Safety Report 9780369 (Version 1)
Quarter: 2013Q4

REPORT INFORMATION
  Report Type: Report from Study
  Country: JP (occurrence: JP)
  Receive Date: 20131224
  Receipt Date: 20131224
  Transmission Date: 20140711
  Serious: Yes (Other)
  Sender: FDA-Public Use
  Company Number: JP-ROCHE-1322032

PATIENT
  Age: 74 Year
  Sex: Male

DRUGS (10)
  1. METHOXY POLYETHYLENE GLYCOL-EPOETIN BETA [Suspect]
     Indication: NEPHROGENIC ANAEMIA
     Route: 058
     Dates: start: 20130522, end: 20130719
  2. NORVASC [Concomitant]
     Route: 048
  3. BAYASPIRIN [Concomitant]
     Route: 048
  4. SIGMART [Concomitant]
     Route: 048
  5. PROTECADIN [Concomitant]
     Dosage: DRUG REPORTED AS : PROTECARDIN OD
     Route: 048
  6. ARICEPT [Concomitant]
     Route: 048
  7. VILDAGLIPTIN [Concomitant]
     Dosage: DRUG REPORTED AS : EQUA
     Route: 048
  8. CAMOSTAT MESILATE [Concomitant]
     Route: 048
  9. EPINASTINE HYDROCHLORIDE [Concomitant]
     Route: 048
  10. KALIMATE [Concomitant]
     Route: 048

REACTIONS (2)
  - Pancreatitis acute [Unknown]
  - Abdominal pain [Recovered/Resolved]
